FAERS Safety Report 9167918 (Version 3)
Quarter: 2013Q2

REPORT INFORMATION
  Report Type: Spontaneous
  Country: US (occurrence: US)
  Receive Date: 20130318
  Receipt Date: 20130503
  Transmission Date: 20140414
  Serious: No
  Sender: FDA-Public Use
  Company Number: US-PFIZER INC-2013088478

PATIENT
  Age: 53 Year
  Sex: Female
  Weight: 64.4 kg

DRUGS (3)
  1. ADVIL PM [Suspect]
     Indication: PAIN
     Dosage: UNK, ONCE A DAY
     Route: 048
     Dates: start: 2008
  2. ADVIL PM [Suspect]
     Indication: SLEEP DISORDER
  3. MORPHINE [Concomitant]
     Dosage: UNK, AS NEEDED

REACTIONS (2)
  - Intentional drug misuse [Unknown]
  - Drug ineffective [Unknown]
